FAERS Safety Report 8257404-9 (Version None)
Quarter: 2012Q2

REPORT INFORMATION
  Report Type: 
  Country: None (occurrence: None)
  Receive Date: 20120403
  Receipt Date: 20120327
  Transmission Date: 20120825
  Serious: Yes (Other)
  Sender: FDA-Public Use
  Company Number: CA-PFIZER INC-2011167093

PATIENT
  Age: 82 Year
  Sex: Female

DRUGS (8)
  1. XALATAN [Suspect]
     Dosage: UNK
     Dates: start: 20120201
  2. CRESTOR [Concomitant]
     Indication: BLOOD CHOLESTEROL INCREASED
     Dosage: 5 MG, 1X/DAY
     Route: 048
     Dates: start: 20101101
  3. VERAPAMIL [Concomitant]
     Indication: HYPERTENSION
     Dosage: 180 MG, 1X/DAY
     Route: 048
     Dates: start: 20010101
  4. LATANOPROST [Suspect]
     Dosage: 1 GTT, 1X/DAY AT BEDTIME
     Dates: start: 20111001, end: 20120201
  5. XALATAN [Suspect]
     Indication: GLAUCOMA
     Dosage: 1 GTT, IN BOTH EYES AT NIGHT, 1X/DAY
     Route: 047
     Dates: start: 20050101, end: 20111001
  6. COZAAR [Concomitant]
     Indication: HYPERTENSION
     Dosage: 100 MG, 1X/DAY
     Route: 048
     Dates: start: 20010101
  7. WARFARIN [Concomitant]
     Indication: THROMBOSIS PROPHYLAXIS
     Dosage: 2 MG, 2X/DAY EVERY OTHER DAY
     Route: 048
     Dates: start: 20101101
  8. WARFARIN [Concomitant]
     Dosage: 3 MG, 1X/DAY, ON OTHER DAYS
     Route: 048
     Dates: start: 20101101

REACTIONS (2)
  - DIPLOPIA [None]
  - AMBLYOPIA [None]
